FAERS Safety Report 9275904 (Version 2)
Quarter: 2013Q2

REPORT INFORMATION
  Report Type: Spontaneous
  Country: US (occurrence: US)
  Receive Date: 20130507
  Receipt Date: 20130610
  Transmission Date: 20140414
  Serious: Yes (Other)
  Sender: FDA-Public Use
  Company Number: US-PFIZER INC-2013138373

PATIENT
  Sex: Female

DRUGS (2)
  1. LEVOXYL [Suspect]
     Indication: AUTOIMMUNE THYROIDITIS
     Dosage: 50 UG, 2X/DAY
     Route: 064
  2. CYTOMEL [Suspect]
     Indication: AUTOIMMUNE THYROIDITIS
     Dosage: UNK, 2X/DAY (ELABORATED AS TWO TABLETS OF 5 MCG EACH IN THE MORNING AND ONE AND A HALF TABLET OF 5 M
     Route: 064

REACTIONS (2)
  - Maternal exposure during pregnancy [Unknown]
  - Amniotic band syndrome [Unknown]
